FAERS Safety Report 10380819 (Version 1)
Quarter: 2014Q3

REPORT INFORMATION
  Report Type: Spontaneous
  Country: US (occurrence: None)
  Receive Date: 20140812
  Receipt Date: 20140812
  Transmission Date: 20150326
  Serious: Yes (Death)
  Sender: FDA-Public Use
  Company Number: None

PATIENT
  Age: 48 Year
  Sex: Female

DRUGS (1)
  1. TECFIDERA [Suspect]
     Active Substance: DIMETHYL FUMARATE
     Indication: MULTIPLE SCLEROSIS
     Route: 048
     Dates: start: 20140523, end: 20140625

REACTIONS (6)
  - Cerebral venous thrombosis [None]
  - Cardiac arrest [None]
  - Cerebral haemorrhage [None]
  - Brain herniation [None]
  - Convulsion [None]
  - Brain death [None]
